FAERS Safety Report 9216370 (Version 2)
Quarter: 2013Q2

REPORT INFORMATION
  Report Type: Spontaneous
  Country: GB (occurrence: GB)
  Receive Date: 20130408
  Receipt Date: 20130513
  Transmission Date: 20140414
  Serious: Yes (Other)
  Sender: FDA-Public Use
  Company Number: PHFR2013GB002093

PATIENT
  Age: 67 Year
  Sex: Female

DRUGS (8)
  1. CLOZARIL [Suspect]
     Indication: PSYCHOTIC DISORDER
     Dosage: 350 MG, UNK
     Route: 048
  2. FEXOFENADINE [Concomitant]
     Indication: ANTIALLERGIC THERAPY
     Dosage: 120 MG, QD
     Route: 048
  3. PANTOPRAZOLE [Concomitant]
     Indication: GASTROINTESTINAL DISORDER
     Dosage: 40 MG, QD
     Route: 048
  4. SERTRALINE [Concomitant]
     Indication: ANXIETY
     Dosage: 200 MG, QD
     Route: 048
  5. DOMPERIDONE [Concomitant]
     Indication: NAUSEA
     Dosage: 10 MG, QD
     Route: 048
  6. PREGABALIN [Concomitant]
     Indication: ANXIETY
     Dosage: 75 MG, BID
     Route: 048
  7. ATORVASTATIN [Concomitant]
     Dosage: 40 MG, QD
     Route: 048
  8. PARACETAMOL [Concomitant]
     Dosage: 1 G, QD
     Route: 048

REACTIONS (1)
  - Wrist fracture [Recovered/Resolved with Sequelae]
